FAERS Safety Report 11714555 (Version 1)
Quarter: 2015Q4

REPORT INFORMATION
  Report Type: Spontaneous
  Country: GB (occurrence: GB)
  Receive Date: 20151109
  Receipt Date: 20151109
  Transmission Date: 20160304
  Serious: Yes (Life-Threatening, Hospitalization, Disabling, Other)
  Sender: FDA-Public Use
  Company Number: GB-ASTRAZENECA-2015SF06926

PATIENT
  Age: 72 Year
  Sex: Female
  Weight: 63 kg

DRUGS (10)
  1. ASPIRIN. [Suspect]
     Active Substance: ASPIRIN
     Indication: MYOCARDIAL ISCHAEMIA
     Route: 048
     Dates: start: 201510
  2. RAMIPRIL. [Concomitant]
     Active Substance: RAMIPRIL
  3. ASPIRIN. [Suspect]
     Active Substance: ASPIRIN
     Indication: MYOCARDIAL ISCHAEMIA
     Route: 048
     Dates: start: 20150723
  4. BISOPROLOL [Concomitant]
     Active Substance: BISOPROLOL
  5. ASPIRIN. [Suspect]
     Active Substance: ASPIRIN
     Indication: MYOCARDIAL ISCHAEMIA
     Route: 048
     Dates: start: 20151017
  6. ATORVASTATIN [Concomitant]
     Active Substance: ATORVASTATIN
  7. TICAGRELOR [Suspect]
     Active Substance: TICAGRELOR
     Indication: MYOCARDIAL ISCHAEMIA
     Route: 048
     Dates: start: 20150723, end: 20151016
  8. GLYCERYL TRINITRATE [Concomitant]
     Active Substance: NITROGLYCERIN
  9. BIMATOPROST. [Concomitant]
     Active Substance: BIMATOPROST
  10. OMEPRAZOLE. [Concomitant]
     Active Substance: OMEPRAZOLE

REACTIONS (3)
  - Brain midline shift [Unknown]
  - Fall [Unknown]
  - Subdural haematoma [Recovering/Resolving]

NARRATIVE: CASE EVENT DATE: 20151013
